FAERS Safety Report 21602750 (Version 1)
Quarter: 2022Q4

REPORT INFORMATION
  Report Type: Spontaneous
  Country: FR (occurrence: FR)
  Receive Date: 20221116
  Receipt Date: 20221116
  Transmission Date: 20230113
  Serious: Yes (Life-Threatening, Other)
  Sender: FDA-Public Use
  Company Number: None

PATIENT
  Age: 48 Year
  Sex: Female
  Weight: 83 kg

DRUGS (3)
  1. CARBOPLATIN [Suspect]
     Active Substance: CARBOPLATIN
     Indication: Breast cancer metastatic
     Dosage: UNK, CYCLIC (DAY 1 AND DAY 8)
     Route: 042
     Dates: start: 20221018, end: 20221025
  2. GEMCITABINE [Concomitant]
     Active Substance: GEMCITABINE
     Indication: Breast cancer metastatic
     Dosage: 1000 MG/M2, CYCLIC (AT DAY 1 AND DAY 8)
     Route: 042
     Dates: start: 20221018, end: 20221025
  3. PEMBROLIZUMAB [Concomitant]
     Active Substance: PEMBROLIZUMAB
     Indication: Breast cancer metastatic
     Dosage: 200 MG, SINGLE
     Route: 042
     Dates: start: 20221018, end: 20221018

REACTIONS (2)
  - Pancytopenia [Unknown]
  - Off label use [Unknown]

NARRATIVE: CASE EVENT DATE: 20221018
